FAERS Safety Report 13344371 (Version 5)
Quarter: 2021Q1

REPORT INFORMATION
  Report Type: Spontaneous
  Country: DE (occurrence: DE)
  Receive Date: 20170317
  Receipt Date: 20210301
  Transmission Date: 20210419
  Serious: Yes (Death, Life-Threatening, Hospitalization, Other)
  Sender: FDA-Public Use
  Company Number: DE-AMGEN-DEUSP2017040312

PATIENT
  Age: 68 Year
  Sex: Male
  Weight: 76 kg

DRUGS (6)
  1. KYPROLIS [Suspect]
     Active Substance: CARFILZOMIB
     Dosage: UNK
     Route: 065
     Dates: start: 20170112, end: 20170203
  2. KYPROLIS [Suspect]
     Active Substance: CARFILZOMIB
     Dosage: 56 MG/M2 (110 MG), UNK
     Route: 042
     Dates: start: 20170223, end: 20170224
  3. DEXAMETHASONE. [Concomitant]
     Active Substance: DEXAMETHASONE
     Indication: PLASMA CELL MYELOMA
     Dosage: UNK
     Dates: start: 201612
  4. OSELTAMIVIR [Concomitant]
     Active Substance: OSELTAMIVIR
     Indication: INFLUENZA
     Dosage: 75 MG/M2, BID
     Route: 048
     Dates: start: 20170215, end: 20170219
  5. KYPROLIS [Suspect]
     Active Substance: CARFILZOMIB
     Indication: PLASMA CELL MYELOMA
     Dosage: UNK
     Route: 065
     Dates: start: 20161222
  6. KYPROLIS [Suspect]
     Active Substance: CARFILZOMIB
     Dosage: UNK
     Route: 065
     Dates: start: 20170209, end: 201702

REACTIONS (3)
  - Hypertension [Recovered/Resolved]
  - Cardiac arrest [Fatal]
  - Influenza [Unknown]

NARRATIVE: CASE EVENT DATE: 20170214
